FAERS Safety Report 5321118-5 (Version None)
Quarter: 2007Q2

REPORT INFORMATION
  Report Type: 
  Country: None (occurrence: None)
  Receive Date: 20070510
  Receipt Date: 20070430
  Transmission Date: 20071010
  Serious: Yes (Hospitalization)
  Sender: FDA-Public Use
  Company Number: GB-AMGEN-US222978

PATIENT
  Sex: Female
  Weight: 83 kg

DRUGS (6)
  1. ETANERCEPT [Suspect]
     Indication: RHEUMATOID ARTHRITIS
     Route: 058
     Dates: start: 20040803, end: 20061001
  2. VOLTAREN [Concomitant]
     Dosage: UNKNOWN
  3. CO-CODAMOL [Concomitant]
     Dosage: UNKNOWN
  4. FOLIC ACID [Concomitant]
     Dosage: UNKNOWN
  5. METHOTREXATE [Concomitant]
     Dosage: UNKNOWN
  6. PREDNISOLONE [Concomitant]
     Dosage: UNKNOWN

REACTIONS (3)
  - MOBILITY DECREASED [None]
  - POST PROCEDURAL INFECTION [None]
  - SURGERY [None]
